FAERS Safety Report 14524591 (Version 1)
Quarter: 2018Q1

REPORT INFORMATION
  Report Type: Spontaneous
  Country: US (occurrence: US)
  Receive Date: 20180213
  Receipt Date: 20180213
  Transmission Date: 20180509
  Serious: No
  Sender: FDA-Public Use
  Company Number: US-IPSEN BIOPHARMACEUTICALS, INC.-2017-01732

PATIENT
  Age: 54 Year
  Sex: Female

DRUGS (2)
  1. RESTYLANE SILK [Suspect]
     Active Substance: HYALURONIC ACID
     Indication: LIPOINJECTION
     Dates: start: 201610
  2. DYSPORT [Suspect]
     Active Substance: ABOBOTULINUMTOXINA
     Indication: SKIN WRINKLING
     Dosage: 20-40 UNITS
     Route: 065
     Dates: start: 201610, end: 201610

REACTIONS (3)
  - Drug effect decreased [Unknown]
  - Lip swelling [Recovered/Resolved]
  - Lip disorder [Not Recovered/Not Resolved]

NARRATIVE: CASE EVENT DATE: 201610
